FAERS Safety Report 18313110 (Version 1)
Quarter: 2020Q3

REPORT INFORMATION
  Report Type: Spontaneous
  Country: US (occurrence: US)
  Receive Date: 20200925
  Receipt Date: 20200925
  Transmission Date: 20201103
  Serious: Yes (Other)
  Sender: FDA-Public Use
  Company Number: US-PFIZER INC-2020369084

PATIENT
  Age: 67 Year
  Sex: Male
  Weight: 86.18 kg

DRUGS (3)
  1. GABAPENTIN. [Suspect]
     Active Substance: GABAPENTIN
     Indication: DEPRESSION
     Dosage: 300 MG, 2X/DAY
     Route: 048
  2. METFORMIN [Concomitant]
     Active Substance: METFORMIN HYDROCHLORIDE
     Indication: DIABETES MELLITUS
     Dosage: 500 MG, 4X/DAY (500MG; TAKE 4 TABLETS IN THE AM BY MOUTH)
     Route: 048
  3. SERTRALINE HCL [Suspect]
     Active Substance: SERTRALINE HYDROCHLORIDE
     Indication: DEPRESSION
     Dosage: 150 MG, DAILY (TAKE 100MG IN THE MORNING AND 50MG AT NIGHT)

REACTIONS (3)
  - Erectile dysfunction [Unknown]
  - Off label use [Unknown]
  - Product use in unapproved indication [Unknown]
